FAERS Safety Report 6517329-3 (Version None)
Quarter: 2009Q4

REPORT INFORMATION
  Report Type: 
  Country: None (occurrence: None)
  Receive Date: 20091218
  Receipt Date: 20091204
  Transmission Date: 20100525
  Serious: Yes (Other)
  Sender: FDA-Public Use
  Company Number: POMP-1000800

PATIENT
  Age: 58 Year
  Sex: Female
  Weight: 69.6 kg

DRUGS (1)
  1. MYOZYME [Suspect]
     Indication: GLYCOGEN STORAGE DISEASE TYPE II
     Dosage: 20 MG/KG, Q2W, INTRAVENOUS
     Route: 042
     Dates: start: 20080107

REACTIONS (7)
  - ABDOMINAL PAIN UPPER [None]
  - BLOOD GLUCOSE INCREASED [None]
  - HEART RATE DECREASED [None]
  - INFUSION RELATED REACTION [None]
  - MUSCULOSKELETAL DISCOMFORT [None]
  - SYNCOPE [None]
  - UNRESPONSIVE TO STIMULI [None]
